FAERS Safety Report 5698798-8 (Version None)
Quarter: 2008Q2

REPORT INFORMATION
  Report Type: 
  Country: None (occurrence: None)
  Receive Date: 20080404
  Receipt Date: 20080401
  Transmission Date: 20081010
  Serious: Yes (Hospitalization)
  Sender: FDA-Public Use
  Company Number: 2007SP025477

PATIENT
  Age: 62 Year
  Sex: Female

DRUGS (6)
  1. PEG-INTRON [Suspect]
     Indication: HEPATITIS C
     Dosage: 30 MCG; QW; SC
     Route: 058
     Dates: start: 20070117, end: 20070627
  2. REBETOL [Suspect]
     Indication: HEPATITIS C
     Dosage: 600 MG; QD; PO
     Route: 048
     Dates: start: 20070117, end: 20070703
  3. LASIX (CON.) [Concomitant]
  4. URSO (CON.) [Concomitant]
  5. HUMALOG (CON.) [Concomitant]
  6. HUMALOG MIX 25 (CON.) [Concomitant]

REACTIONS (3)
  - COMA [None]
  - DIABETIC KETOACIDOSIS [None]
  - HEPATIC STEATOSIS [None]
